FAERS Safety Report 10911921 (Version 1)
Quarter: 2015Q1

REPORT INFORMATION
  Report Type: Spontaneous
  Country: US (occurrence: None)
  Receive Date: 20150310
  Receipt Date: 20150310
  Transmission Date: 20150721
  Serious: Yes (Other)
  Sender: FDA-Public Use
  Company Number: None

PATIENT
  Age: 70 Year
  Sex: Male

DRUGS (3)
  1. INVEGA [Suspect]
     Active Substance: PALIPERIDONE
  2. RISPERIDONE. [Suspect]
     Active Substance: RISPERIDONE
  3. HALDOL [Suspect]
     Active Substance: HALOPERIDOL

REACTIONS (5)
  - Extrasystoles [None]
  - Cardiac flutter [None]
  - Abdominal discomfort [None]
  - Heart rate irregular [None]
  - Tremor [None]
